FAERS Safety Report 6767098-7 (Version None)
Quarter: 2010Q2

REPORT INFORMATION
  Report Type: 
  Country: None (occurrence: None)
  Receive Date: 20100614
  Receipt Date: 20100601
  Transmission Date: 20101027
  Serious: Yes (Hospitalization, Other)
  Sender: FDA-Public Use
  Company Number: TW-ELI_LILLY_AND_COMPANY-TW201006000893

PATIENT
  Age: 68 Year
  Sex: Male

DRUGS (2)
  1. GEMCITABINE HYDROCHLORIDE [Suspect]
     Indication: NON-SMALL CELL LUNG CANCER STAGE IIIB
     Dosage: 2163 MG, UNK
     Route: 042
     Dates: start: 20100325
  2. CISPLATIN [Suspect]
     Indication: NON-SMALL CELL LUNG CANCER STAGE IIIB
     Dosage: 130 MG, UNK
     Route: 042
     Dates: start: 20100325

REACTIONS (5)
  - DECREASED APPETITE [None]
  - MALAISE [None]
  - PLEURAL EFFUSION [None]
  - PNEUMONIA KLEBSIELLA [None]
  - RENAL FAILURE ACUTE [None]
